FAERS Safety Report 23888987 (Version 1)
Quarter: 2024Q2

REPORT INFORMATION
  Report Type: Report from Study
  Country: CA (occurrence: CA)
  Receive Date: 20240523
  Receipt Date: 20240523
  Transmission Date: 20240716
  Serious: Yes (Other)
  Sender: FDA-Public Use
  Company Number: CA-SANDOZ-SDZ2024CA049517

PATIENT
  Age: 3 Year
  Sex: Male

DRUGS (1)
  1. OMNITROPE [Suspect]
     Active Substance: SOMATROPIN
     Indication: Short stature
     Dosage: 0.6 MG 7X PER WEEK
     Route: 058
     Dates: start: 20240425

REACTIONS (2)
  - Salmonellosis [Unknown]
  - Product storage error [Unknown]

NARRATIVE: CASE EVENT DATE: 20240517
